FAERS Safety Report 21669686 (Version 1)
Quarter: 2022Q4

REPORT INFORMATION
  Report Type: Report from Study
  Country: IT (occurrence: IT)
  Receive Date: 20221201
  Receipt Date: 20221201
  Transmission Date: 20230113
  Serious: Yes (Other)
  Sender: FDA-Public Use
  Company Number: IT-002147023-NVSC2019IT057991

PATIENT
  Sex: Female

DRUGS (1)
  1. RIBOCICLIB [Suspect]
     Active Substance: RIBOCICLIB
     Indication: Product used for unknown indication
     Dosage: 200 OT (3 TABLETS DAILY FOR 3 WEEKS AND 1 WEEK INTERRUPTION)
     Route: 065

REACTIONS (1)
  - Interstitial lung disease [Unknown]
